FAERS Safety Report 17472722 (Version 1)
Quarter: 2020Q1

REPORT INFORMATION
  Report Type: Spontaneous
  Country: US (occurrence: US)
  Receive Date: 20200217
  Receipt Date: 20200217
  Transmission Date: 20200409
  Serious: Yes (Other)
  Sender: FDA-Public Use
  Company Number: None

PATIENT
  Age: 87 Year
  Sex: Male
  Weight: 94.8 kg

DRUGS (1)
  1. ATORVASTATIN (ATORVASTATIN CA 10MG TAB) [Suspect]
     Active Substance: ATORVASTATIN
     Indication: HYPERLIPIDAEMIA
     Route: 048
     Dates: start: 20040520, end: 20180810

REACTIONS (7)
  - Rhinorrhoea [None]
  - Faeces soft [None]
  - Drooling [None]
  - Fatigue [None]
  - Muscular weakness [None]
  - Myalgia [None]
  - Weight increased [None]

NARRATIVE: CASE EVENT DATE: 20180810
